FAERS Safety Report 19823348 (Version 1)
Quarter: 2021Q3

REPORT INFORMATION
  Report Type: Spontaneous
  Country: US (occurrence: US)
  Receive Date: 20210913
  Receipt Date: 20210913
  Transmission Date: 20211014
  Serious: No
  Sender: FDA-Public Use
  Company Number: US-GALDERMA-US2021015476

PATIENT

DRUGS (6)
  1. PROACTIV MD ULTRA GENTLE CLEANSER [Concomitant]
     Dosage: 1 DOSAGE FORM, QOD
     Route: 061
     Dates: end: 202107
  2. PROACTIV MD ULTRA HYDRATING MOISTURIZER [Concomitant]
     Indication: PRODUCT USED FOR UNKNOWN INDICATION
     Dosage: 1 DOSAGE FORM, QD, EVERYDAY
     Route: 061
     Dates: start: 202012
  3. PROACTIV MD ADAPALENE ACNE TREATMENT [Suspect]
     Active Substance: ADAPALENE
     Indication: PRODUCT USED FOR UNKNOWN INDICATION
     Dosage: 1 DOSAGE FORM, QD, EVERY DAY
     Route: 061
     Dates: start: 202012
  4. PROACTIV MD ADAPALENE ACNE TREATMENT [Suspect]
     Active Substance: ADAPALENE
     Dosage: 1 DOSAGE FORM, QOD
     Route: 061
     Dates: end: 202107
  5. PROACTIV MD ULTRA GENTLE CLEANSER [Concomitant]
     Indication: PRODUCT USED FOR UNKNOWN INDICATION
     Dosage: 1 DOSAGE FORM, QD,EVERY DAY
     Route: 061
     Dates: start: 202012
  6. PROACTIV MD ULTRA HYDRATING MOISTURIZER [Concomitant]
     Dosage: 1 DOSAGE FORM, QOD
     Route: 061
     Dates: end: 202107

REACTIONS (4)
  - Inappropriate schedule of product administration [Recovered/Resolved]
  - Dry skin [Recovered/Resolved]
  - Drug ineffective [Unknown]
  - Underdose [Recovered/Resolved]

NARRATIVE: CASE EVENT DATE: 202012
